FAERS Safety Report 6426618-2 (Version None)
Quarter: 2009Q4

REPORT INFORMATION
  Report Type: 
  Country: None (occurrence: None)
  Receive Date: 20091104
  Receipt Date: 20091022
  Transmission Date: 20100525
  Serious: Yes (Other)
  Sender: FDA-Public Use
  Company Number: NL-ELI_LILLY_AND_COMPANY-NL200910005692

PATIENT
  Sex: Male
  Weight: 92.5 kg

DRUGS (6)
  1. SOMATROPIN [Suspect]
     Indication: GROWTH HORMONE DEFICIENCY
     Dosage: 0.1 MG, DAILY (1/D)
     Route: 058
     Dates: start: 19930101
  2. THYROXIN [Concomitant]
     Indication: SECONDARY HYPOTHYROIDISM
     Dates: start: 19930101
  3. HYDROCORTISON [Concomitant]
     Indication: ONCOLOGIC COMPLICATION
     Dates: start: 19930101
  4. TESTOSTERONE [Concomitant]
     Indication: SECONDARY HYPOGONADISM
     Dates: start: 19930101
  5. PARLODEL [Concomitant]
     Indication: PROLACTINOMA
     Dates: start: 19810101
  6. NASONEX [Concomitant]
     Indication: RHINITIS ALLERGIC
     Dates: start: 20080101

REACTIONS (1)
  - ANGIOMYOLIPOMA [None]
